FAERS Safety Report 21885241 (Version 1)
Quarter: 2023Q1

REPORT INFORMATION
  Report Type: Spontaneous
  Country: US (occurrence: None)
  Receive Date: 20230118
  Receipt Date: 20230118
  Transmission Date: 20230417
  Serious: Yes (Hospitalization, Other)
  Sender: FDA-Public Use
  Company Number: None

PATIENT
  Age: 46 Year
  Sex: Male
  Weight: 78.75 kg

DRUGS (1)
  1. INFLECTRA [Suspect]
     Active Substance: INFLIXIMAB-DYYB
     Indication: Crohn^s disease
     Dosage: OTHER FREQUENCY : WK 0,2,6 THEN Q8W;?
     Route: 042
     Dates: start: 20221031, end: 20221121

REACTIONS (2)
  - Infusion related reaction [None]
  - Myocardial infarction [None]

NARRATIVE: CASE EVENT DATE: 20221121
